FAERS Safety Report 25940708 (Version 1)
Quarter: 2025Q4

REPORT INFORMATION
  Report Type: Spontaneous
  Country: US (occurrence: None)
  Receive Date: 20251017
  Receipt Date: 20251017
  Transmission Date: 20260118
  Serious: Yes (Disabling)
  Sender: FDA-CTU
  Company Number: None

PATIENT
  Age: 41 Year
  Sex: Female
  Weight: 103.5 kg

DRUGS (4)
  1. TIRZEPATIDE [Suspect]
     Active Substance: TIRZEPATIDE
     Indication: Postprandial hypoglycaemia
     Dosage: OTHER QUANTITY : 30 TABLET(S);?FREQUENCY : DAILY;?
     Route: 060
     Dates: start: 20250915, end: 20251008
  2. TIRZEPATIDE [Suspect]
     Active Substance: TIRZEPATIDE
     Indication: Hypoglycaemia
  3. Continuous Glucose Monitor [Concomitant]
  4. MINERALS\VITAMINS [Concomitant]
     Active Substance: MINERALS\VITAMINS

REACTIONS (7)
  - Drug ineffective [None]
  - Product substitution issue [None]
  - Product sterility issue [None]
  - Product compounding quality issue [None]
  - Product use issue [None]
  - Product advertising issue [None]
  - Product communication issue [None]

NARRATIVE: CASE EVENT DATE: 20251008
